FAERS Safety Report 5131070-3 (Version None)
Quarter: 2006Q3

REPORT INFORMATION
  Report Type: 
  Country: None (occurrence: None)
  Receive Date: 20060829
  Receipt Date: 20060531
  Transmission Date: 20061208
  Serious: No
  Sender: FDA-Public Use
  Company Number: S06-USA-02083-01

PATIENT
  Age: 49 Year
  Sex: Female

DRUGS (4)
  1. CAMPRAL [Suspect]
     Indication: ALCOHOLISM
     Dosage: 666 MG TID PO
     Route: 048
     Dates: start: 20060503
  2. LEXAPRO [Suspect]
     Indication: ANXIETY
     Dosage: 40 MG QD PO
     Route: 048
     Dates: start: 20050101
  3. MINOCYCLINE HCL [Concomitant]
  4. XANAX [Concomitant]

REACTIONS (3)
  - DIARRHOEA [None]
  - DYSPEPSIA [None]
  - FLATULENCE [None]
